FAERS Safety Report 8247360-1 (Version None)
Quarter: 2012Q1

REPORT INFORMATION
  Report Type: 
  Country: None (occurrence: None)
  Receive Date: 20120327
  Receipt Date: 20120316
  Transmission Date: 20120608
  Serious: Yes (Congenital Anomaly, Other)
  Sender: FDA-Public Use
  Company Number: AUR-APL-2012-01512

PATIENT
  Sex: Male
  Weight: 3.32 kg

DRUGS (3)
  1. LAMOTRIGINE [Suspect]
     Indication: BIPOLAR DISORDER
     Dosage: (350 MG,1 D),TRANSPLACENTAL ; (400 MG,1 D),TRANSPLACENTAL
     Route: 064
     Dates: start: 20101213
  2. LAMOTRIGINE [Suspect]
     Indication: BIPOLAR DISORDER
     Dosage: (350 MG,1 D),TRANSPLACENTAL ; (400 MG,1 D),TRANSPLACENTAL
     Route: 064
     Dates: end: 20110922
  3. FOLSAURE SANDOZ (FOLIC ACID) [Concomitant]

REACTIONS (4)
  - HIP DYSPLASIA [None]
  - MATERNAL DRUGS AFFECTING FOETUS [None]
  - HAEMANGIOMA [None]
  - EXPOSURE DURING BREAST FEEDING [None]
